FAERS Safety Report 6042533-0 (Version None)
Quarter: 2009Q1

REPORT INFORMATION
  Report Type: 
  Country: None (occurrence: None)
  Receive Date: 20090118
  Receipt Date: 20090107
  Transmission Date: 20090719
  Serious: Yes (Hospitalization)
  Sender: FDA-Public Use
  Company Number: FR-PFIZER INC-2009152013

PATIENT

DRUGS (2)
  1. SUNITINIB MALATE [Suspect]
     Indication: BREAST CANCER
     Dosage: 37.5 MG, 1X/DAY
     Route: 048
     Dates: start: 20081117, end: 20081223
  2. *CAPECITABINE [Suspect]
     Indication: BREAST CANCER
     Dosage: UNK

REACTIONS (2)
  - GASTROENTERITIS [None]
  - LOSS OF CONSCIOUSNESS [None]
